FAERS Safety Report 8623309-4 (Version None)
Quarter: 2012Q3

REPORT INFORMATION
  Report Type: 
  Country: None (occurrence: None)
  Receive Date: 20120827
  Receipt Date: 20120816
  Transmission Date: 20120928
  Serious: Yes (Hospitalization, Other)
  Sender: FDA-Public Use
  Company Number: US-ELI_LILLY_AND_COMPANY-US201208005244

PATIENT
  Sex: Female

DRUGS (3)
  1. XANAX [Concomitant]
  2. CYMBALTA [Suspect]
     Dosage: UNK
     Dates: start: 20120801
  3. CYMBALTA [Suspect]
     Indication: DEPRESSION
     Dosage: 120 MG, QD
     Dates: end: 20120101

REACTIONS (3)
  - SUICIDAL IDEATION [None]
  - SUICIDE ATTEMPT [None]
  - DRUG WITHDRAWAL SYNDROME [None]
